FAERS Safety Report 4320790-6 (Version None)
Quarter: 2004Q1

REPORT INFORMATION
  Report Type: 
  Country: None (occurrence: None)
  Receive Date: 20040315
  Receipt Date: 20030820
  Transmission Date: 20041129
  Serious: Yes (Other)
  Sender: FDA-Public Use
  Company Number: PHEH2003US04223

PATIENT
  Sex: Female

DRUGS (3)
  1. TRILEPTAL [Suspect]
     Dosage: 150 MG, ORAL
     Route: 048
  2. LOPRESSOR [Suspect]
     Dosage: ORAL
     Route: 048
  3. PAXIL [Suspect]
     Dosage: ORAL
     Route: 048

REACTIONS (3)
  - FATIGUE [None]
  - HYPOTENSION [None]
  - MEDICATION ERROR [None]
